FAERS Safety Report 18213852 (Version 1)
Quarter: 2020Q3

REPORT INFORMATION
  Report Type: Spontaneous
  Country: BA (occurrence: BA)
  Receive Date: 20200831
  Receipt Date: 20200831
  Transmission Date: 20201103
  Serious: Yes (Death, Life-Threatening, Hospitalization, Other)
  Sender: FDA-Public Use
  Company Number: BA-009507513-2008BIH013981

PATIENT
  Sex: Male

DRUGS (1)
  1. KEYTRUDA [Suspect]
     Active Substance: PEMBROLIZUMAB
     Indication: LUNG NEOPLASM MALIGNANT
     Dosage: REGULARLY/10 CYCLICAL
     Dates: start: 2019

REACTIONS (17)
  - Chest discomfort [Unknown]
  - Congestive cardiomyopathy [Unknown]
  - Chronic obstructive pulmonary disease [Unknown]
  - Dyspnoea [Unknown]
  - Cardiac arrest [Fatal]
  - Asphyxia [Unknown]
  - Mitral valve incompetence [Unknown]
  - Respiratory failure [Unknown]
  - Emphysema [Unknown]
  - Cardiac disorder [Unknown]
  - Movement disorder [Unknown]
  - Malignant neoplasm progression [Fatal]
  - Ischaemic cardiomyopathy [Unknown]
  - Left ventricular failure [Unknown]
  - ECG signs of ventricular hypertrophy [Unknown]
  - Arthralgia [Unknown]
  - Blood pressure increased [Unknown]

NARRATIVE: CASE EVENT DATE: 2019
